FAERS Safety Report 7617921-9 (Version None)
Quarter: 2011Q3

REPORT INFORMATION
  Report Type: 
  Country: None (occurrence: None)
  Receive Date: 20110718
  Receipt Date: 20110704
  Transmission Date: 20111222
  Serious: Yes (Hospitalization)
  Sender: FDA-Public Use
  Company Number: PHHY2011BR61434

PATIENT
  Sex: Male

DRUGS (2)
  1. DIOVAN [Suspect]
     Dosage: 160 MG, UNK
     Route: 048
  2. DIOVAN [Suspect]
     Dosage: 80 MG, UNK
     Route: 048

REACTIONS (1)
  - POST PROCEDURAL COMPLICATION [None]
